FAERS Safety Report 9351253 (Version 1)
Quarter: 2013Q2

REPORT INFORMATION
  Report Type: Spontaneous
  Country: GB (occurrence: GB)
  Receive Date: 20130617
  Receipt Date: 20130617
  Transmission Date: 20140414
  Serious: Yes (Hospitalization)
  Sender: FDA-Public Use
  Company Number: GB-TEVA-412293ISR

PATIENT
  Age: 66 Year
  Sex: Female

DRUGS (1)
  1. NAPROXEN [Suspect]
     Route: 048

REACTIONS (1)
  - Lower limb fracture [Unknown]
